FAERS Safety Report 7071611-2 (Version None)
Quarter: 2010Q4

REPORT INFORMATION
  Report Type: 
  Country: None (occurrence: None)
  Receive Date: 20101029
  Receipt Date: 20090928
  Transmission Date: 20110411
  Serious: No
  Sender: FDA-Public Use
  Company Number: A0809318A

PATIENT
  Age: 75 Year
  Sex: Female

DRUGS (9)
  1. ADVAIR DISKUS 100/50 [Suspect]
     Indication: CHRONIC OBSTRUCTIVE PULMONARY DISEASE
     Dosage: 1PUFF TWICE PER DAY
     Route: 055
     Dates: start: 20090701
  2. OXYGEN [Concomitant]
  3. LEVOXYL [Concomitant]
  4. LASIX [Concomitant]
  5. MAGNESIUM OXIDE [Concomitant]
  6. COREG [Concomitant]
  7. PLAVIX [Concomitant]
  8. LISINOPRIL [Concomitant]
  9. CENTRUM [Concomitant]

REACTIONS (1)
  - DRUG INEFFECTIVE [None]
